FAERS Safety Report 11211885 (Version 1)
Quarter: 2015Q2

REPORT INFORMATION
  Report Type: Other
  Country: GB (occurrence: GB)
  Receive Date: 20150623
  Receipt Date: 20150623
  Transmission Date: 20150821
  Serious: Yes (Disabling)
  Sender: FDA-Public Use
  Company Number: GB-MYLANLABS-2015M1019321

PATIENT

DRUGS (12)
  1. TAMSULOSIN [Concomitant]
     Active Substance: TAMSULOSIN
     Dosage: 400 ?G, QD
  2. COMTESS [Concomitant]
     Active Substance: ENTACAPONE
     Dosage: 200 MG, 8XD
  3. APOMORPHINE HYDROCHLORIDE [Concomitant]
     Active Substance: APOMORPHINE HYDROCHLORIDE
     Dosage: 5 MG, (5MG BOLUS AS REQUIRED UP TO 6/DAY)
  4. ATENOLOL. [Concomitant]
     Active Substance: ATENOLOL
     Dosage: 25 MG, QD
  5. SUPPLEMIN C [Concomitant]
     Dosage: UNK
  6. LAXIDO [Concomitant]
     Active Substance: POLYETHYLENE GLYCOL 3350\POTASSIUM CHLORIDE\SODIUM BICARBONATE\SODIUM CHLORIDE
     Dosage: USE AS DIRECTED
     Route: 048
  7. ROTIGOTINE [Concomitant]
     Active Substance: ROTIGOTINE
     Dosage: 2 DF, QD (APPLY TWO PATCHES DAILY
     Route: 062
  8. ENTACAPONE MYLAN [Suspect]
     Active Substance: ENTACAPONE
     Indication: PARKINSON^S DISEASE
     Dosage: 200 MG, 8XD
     Route: 048
  9. GAVISCON [Concomitant]
     Active Substance: ALUMINUM HYDROXIDE\MAGNESIUM CARBONATE
     Dosage: 5-10 MLS 4 TIMES A DAY AND AT BEDTIME WHEN REQUIRED
  10. MADOPAR [Concomitant]
     Active Substance: BENSERAZIDE HYDROCHLORIDE\LEVODOPA
     Dosage: 8 DF, QD
  11. HYOSCINE [Concomitant]
     Active Substance: SCOPOLAMINE
     Dosage: 0.5 DF, (HALF PATCH EVERY 72 HOURS)
     Route: 062
  12. MADOPAR [Concomitant]
     Active Substance: BENSERAZIDE HYDROCHLORIDE\LEVODOPA
     Dosage: 1 DF, QD (IN THE MORNING)

REACTIONS (4)
  - Hallucination [Not Recovered/Not Resolved]
  - Somnambulism [Not Recovered/Not Resolved]
  - Product substitution issue [Unknown]
  - Abnormal dreams [Not Recovered/Not Resolved]

NARRATIVE: CASE EVENT DATE: 20150420
